FAERS Safety Report 11247537 (Version 1)
Quarter: 2015Q3

REPORT INFORMATION
  Report Type: Spontaneous
  Country: RO (occurrence: None)
  Receive Date: 20150706
  Receipt Date: 20150706
  Transmission Date: 20151125
  Serious: Yes (Hospitalization)
  Sender: FDA-Public Use
  Company Number: 2015JUB00197

PATIENT
  Age: 48 Year
  Sex: Female

DRUGS (1)
  1. CARBAMAZEPINE (CARBAMAZEPINE) UNKNOWN [Suspect]
     Active Substance: CARBAMAZEPINE
     Route: 048

REACTIONS (5)
  - Hyperammonaemia [None]
  - Coma [None]
  - Intentional overdose [None]
  - Encephalopathy [None]
  - Neurotoxicity [None]
